FAERS Safety Report 10908503 (Version 1)
Quarter: 2015Q1

REPORT INFORMATION
  Report Type: Spontaneous
  Country: CA (occurrence: CA)
  Receive Date: 20150312
  Receipt Date: 20150312
  Transmission Date: 20150721
  Serious: Yes (Other)
  Sender: FDA-Public Use
  Company Number: CA-TEVA-546853USA

PATIENT
  Age: 3 Month
  Sex: Female

DRUGS (1)
  1. TEVA-RANITIDINE [Suspect]
     Active Substance: RANITIDINE HYDROCHLORIDE
     Indication: PRODUCT USED FOR UNKNOWN INDICATION
     Dosage: UNIT DOSE: 15MG/ML
     Route: 048
     Dates: start: 201412

REACTIONS (2)
  - Breast enlargement [Unknown]
  - Hormone level abnormal [Unknown]
